FAERS Safety Report 11203329 (Version 1)
Quarter: 2015Q2

REPORT INFORMATION
  Report Type: Spontaneous
  Country: RU (occurrence: RU)
  Receive Date: 20150619
  Receipt Date: 20150619
  Transmission Date: 20150821
  Serious: Yes (Other)
  Sender: FDA-Public Use
  Company Number: RU-GLAXOSMITHKLINE-B1027998A

PATIENT
  Sex: Female

DRUGS (8)
  1. LAMIVUDINE-HIV [Suspect]
     Active Substance: LAMIVUDINE
     Indication: HIV INFECTION
     Dosage: 1 DF, BID
     Route: 065
     Dates: start: 201405
  2. ZIDO-H [Suspect]
     Active Substance: ZIDOVUDINE
     Indication: HIV INFECTION
     Route: 065
  3. KIVEXA [Suspect]
     Active Substance: ABACAVIR SULFATE\LAMIVUDINE
     Indication: HIV INFECTION
     Route: 065
     Dates: start: 201405, end: 201405
  4. COMBIVIR [Suspect]
     Active Substance: LAMIVUDINE\ZIDOVUDINE
     Indication: HIV INFECTION
     Route: 065
     Dates: start: 201309, end: 201405
  5. KALETRA [Suspect]
     Active Substance: LOPINAVIR\RITONAVIR
     Indication: HIV INFECTION
     Dosage: 2 DF, BID
     Route: 065
     Dates: start: 201309
  6. NIKAVIR [Suspect]
     Active Substance: PHOSPHAZIDE
     Indication: HIV INFECTION
     Dosage: UNK
     Route: 065
     Dates: start: 201405
  7. NIKAVIR [Suspect]
     Active Substance: PHOSPHAZIDE
     Dosage: 1 DF, BID
     Dates: start: 20140427
  8. RETROVIR [Suspect]
     Active Substance: ZIDOVUDINE
     Indication: HIV INFECTION
     Route: 042

REACTIONS (11)
  - Drug hypersensitivity [Recovered/Resolved]
  - Dyspnoea [Recovered/Resolved]
  - Diarrhoea [Unknown]
  - Live birth [Recovered/Resolved]
  - Pyrexia [Recovered/Resolved]
  - Anaemia [Not Recovered/Not Resolved]
  - Premature labour [Recovered/Resolved]
  - Pharyngeal oedema [Recovered/Resolved]
  - Arthralgia [Recovered/Resolved]
  - Gestational diabetes [Recovered/Resolved]
  - Exposure during pregnancy [Unknown]

NARRATIVE: CASE EVENT DATE: 201405
